FAERS Safety Report 12844741 (Version 1)
Quarter: 2016Q4

REPORT INFORMATION
  Report Type: Spontaneous
  Country: US (occurrence: US)
  Receive Date: 20161013
  Receipt Date: 20161013
  Transmission Date: 20170207
  Serious: No
  Sender: FDA-Public Use
  Company Number: US-PFIZER INC-2016472318

PATIENT
  Age: 88 Year
  Sex: Male
  Weight: 75 kg

DRUGS (1)
  1. DOFETILIDE. [Suspect]
     Active Substance: DOFETILIDE
     Indication: ATRIAL FIBRILLATION
     Dosage: 250 MG, DAILY (125MG CAPSULE, TWO A DAY)
     Route: 048
     Dates: end: 201610

REACTIONS (1)
  - Drug ineffective [Not Recovered/Not Resolved]
